FAERS Safety Report 6530533-3 (Version None)
Quarter: 2010Q1

REPORT INFORMATION
  Report Type: 
  Country: None (occurrence: None)
  Receive Date: 20100106
  Receipt Date: 20100106
  Transmission Date: 20100710
  Serious: No
  Sender: FDA-Public Use
  Company Number: None

PATIENT
  Age: 50 Year
  Sex: Male

DRUGS (1)
  1. ENTEREG [Suspect]
     Indication: SIGMOIDECTOMY
     Dosage: 12 MG BID PO
     Route: 048
     Dates: start: 20090619, end: 20090624

REACTIONS (1)
  - NAUSEA [None]
